FAERS Safety Report 22155945 (Version 3)
Quarter: 2023Q2

REPORT INFORMATION
  Report Type: Spontaneous
  Country: US (occurrence: US)
  Receive Date: 20230330
  Receipt Date: 20230413
  Transmission Date: 20230721
  Serious: No
  Sender: FDA-Public Use
  Company Number: US-PFIZER INC-PV202300054031

PATIENT
  Age: 86 Year
  Sex: Male

DRUGS (7)
  1. CIBINQO [Suspect]
     Active Substance: ABROCITINIB
     Indication: Dermatitis atopic
     Dosage: 100 MG, DAILY
     Route: 048
  2. CIBINQO [Suspect]
     Active Substance: ABROCITINIB
     Indication: Pruritus
  3. CIBINQO [Suspect]
     Active Substance: ABROCITINIB
     Indication: Neurodermatitis
  4. CIBINQO [Suspect]
     Active Substance: ABROCITINIB
     Indication: Skin abrasion
  5. CIBINQO [Suspect]
     Active Substance: ABROCITINIB
     Indication: Xerosis
  6. CIBINQO [Suspect]
     Active Substance: ABROCITINIB
     Indication: Ecchymosis
  7. CIBINQO [Suspect]
     Active Substance: ABROCITINIB
     Indication: Seborrhoeic keratosis

REACTIONS (3)
  - Pruritus [Unknown]
  - Discomfort [Not Recovered/Not Resolved]
  - Circumstance or information capable of leading to medication error [Unknown]

NARRATIVE: CASE EVENT DATE: 20230330
